FAERS Safety Report 26190098 (Version 1)
Quarter: 2025Q4

REPORT INFORMATION
  Report Type: Spontaneous
  Country: JP (occurrence: JP)
  Receive Date: 20251223
  Receipt Date: 20251223
  Transmission Date: 20260117
  Serious: Yes (Hospitalization, Other)
  Sender: Haleon PLC
  Company Number: JP-002147023-NVSJ2025JP012149

PATIENT
  Age: 86 Year
  Sex: Female

DRUGS (1)
  1. VOLTAREN [Suspect]
     Active Substance: DICLOFENAC SODIUM
     Indication: Product used for unknown indication
     Dosage: UNK

REACTIONS (7)
  - Postoperative wound infection [Unknown]
  - Abdominal pain [Unknown]
  - Duodenal perforation [Unknown]
  - Fungal peritonitis [Unknown]
  - Vomiting [Unknown]
  - Inflammation [Recovering/Resolving]
  - Decreased activity [Unknown]
